FAERS Safety Report 8148707-7 (Version None)
Quarter: 2012Q1

REPORT INFORMATION
  Report Type: 
  Country: None (occurrence: None)
  Receive Date: 20120218
  Receipt Date: 20110621
  Transmission Date: 20120608
  Serious: No
  Sender: FDA-Public Use
  Company Number: US-ALLERGAN-1108432US

PATIENT
  Age: 61 Year
  Sex: Female
  Weight: 62.585 kg

DRUGS (2)
  1. DYSPORT [Suspect]
     Indication: SKIN WRINKLING
     Dosage: 300 UNITS, SINGLE
     Route: 030
     Dates: start: 20110606, end: 20110606
  2. BOTOX COSMETIC [Suspect]
     Indication: SKIN WRINKLING
     Dosage: UNK
     Dates: start: 20110606

REACTIONS (4)
  - OROPHARYNGEAL PAIN [None]
  - LETHARGY [None]
  - MYALGIA [None]
  - COUGH [None]
